FAERS Safety Report 8958500 (Version 1)
Quarter: 2012Q4

REPORT INFORMATION
  Report Type: Spontaneous
  Country: US (occurrence: None)
  Receive Date: 20121205
  Receipt Date: 20121205
  Transmission Date: 20130627
  Serious: No
  Sender: FDA-Public Use
  Company Number: None

PATIENT
  Age: 60 Year
  Weight: 86.18 kg

DRUGS (2)
  1. DYE [Suspect]
  2. PREDNISONE [Suspect]
     Dates: start: 20121019

REACTIONS (15)
  - Rash [None]
  - Rash [None]
  - Pruritus [None]
  - Dyspnoea [None]
  - Swelling face [None]
  - Local swelling [None]
  - Gastric disorder [None]
  - Swelling [None]
  - Mood altered [None]
  - Erythema [None]
  - Dyspepsia [None]
  - Burning sensation [None]
  - Skin atrophy [None]
  - Contusion [None]
  - Skin discolouration [None]
